FAERS Safety Report 8003050-1 (Version None)
Quarter: 2011Q4

REPORT INFORMATION
  Report Type: 
  Country: None (occurrence: None)
  Receive Date: 20111222
  Receipt Date: 20111213
  Transmission Date: 20120403
  Serious: Yes (Hospitalization)
  Sender: FDA-Public Use
  Company Number: US-ELI_LILLY_AND_COMPANY-US201112004298

PATIENT
  Sex: Male

DRUGS (4)
  1. HUMATROPE [Suspect]
     Indication: PITUITARY TUMOUR
     Dosage: UNK, UNKNOWN
  2. TESTOSTERONE [Concomitant]
     Dosage: UNK, 2/M
  3. CORTICOSTEROIDS [Concomitant]
  4. HYDROCORTISONE [Concomitant]

REACTIONS (3)
  - HIP ARTHROPLASTY [None]
  - MOBILITY DECREASED [None]
  - PROCEDURAL PAIN [None]
